FAERS Safety Report 21916532 (Version 2)
Quarter: 2023Q1

REPORT INFORMATION
  Report Type: Report from Study
  Country: US (occurrence: US)
  Receive Date: 20230126
  Receipt Date: 20230309
  Transmission Date: 20230418
  Serious: Yes (Other)
  Sender: FDA-Public Use
  Company Number: US-ABBVIE-4280480

PATIENT
  Sex: Female
  Weight: 50 kg

DRUGS (14)
  1. HUMIRA [Suspect]
     Active Substance: ADALIMUMAB
     Indication: Rheumatoid arthritis
     Route: 058
     Dates: start: 2022
  2. LORATADINE [Concomitant]
     Active Substance: LORATADINE
     Indication: Hypersensitivity
  3. ESOMEPRAZOLE [Concomitant]
     Active Substance: ESOMEPRAZOLE
     Indication: Gastrooesophageal reflux disease
  4. TARCEVA [Concomitant]
     Active Substance: ERLOTINIB HYDROCHLORIDE
     Indication: Diabetes mellitus
  5. MINERALS\VITAMINS [Concomitant]
     Active Substance: MINERALS\VITAMINS
     Indication: Supplementation therapy
  6. FLUTICASONE [Concomitant]
     Active Substance: FLUTICASONE
     Indication: Hypersensitivity
  7. NOVOLOG [Concomitant]
     Active Substance: INSULIN ASPART
     Indication: Diabetes mellitus
  8. IRON [Concomitant]
     Active Substance: IRON
     Indication: Iron deficiency
  9. Tazanidine [Concomitant]
     Indication: Muscle spasms
  10. METFORMIN [Concomitant]
     Active Substance: METFORMIN HYDROCHLORIDE
     Indication: Diabetes mellitus
  11. TRAMADOL [Concomitant]
     Active Substance: TRAMADOL
     Indication: Pain
     Dosage: AS NEEDED
  12. TYLENOL [Concomitant]
     Active Substance: ACETAMINOPHEN
     Indication: Headache
  13. Artificial Tears [Concomitant]
     Indication: Dry eye
  14. GABAPENTIN [Concomitant]
     Active Substance: GABAPENTIN
     Indication: Pain

REACTIONS (4)
  - Spinal compression fracture [Recovering/Resolving]
  - Back pain [Recovering/Resolving]
  - Blood cholesterol increased [Unknown]
  - Blood magnesium decreased [Unknown]

NARRATIVE: CASE EVENT DATE: 20220101
